FAERS Safety Report 7553607-7 (Version None)
Quarter: 2011Q2

REPORT INFORMATION
  Report Type: 
  Country: None (occurrence: None)
  Receive Date: 20110617
  Receipt Date: 20110609
  Transmission Date: 20111010
  Serious: Yes (Hospitalization)
  Sender: FDA-Public Use
  Company Number: US-JNJFOC-20110606145

PATIENT
  Age: 9 Decade
  Sex: Male

DRUGS (1)
  1. LEVAQUIN [Suspect]
     Indication: INFECTION
     Route: 048
     Dates: start: 20110101, end: 20110101

REACTIONS (6)
  - MYASTHENIC SYNDROME [None]
  - AMYOTROPHIC LATERAL SCLEROSIS [None]
  - SPEECH DISORDER [None]
  - SELF-MEDICATION [None]
  - DYSPHAGIA [None]
  - MUSCLE CONTRACTIONS INVOLUNTARY [None]
